FAERS Safety Report 18785671 (Version 8)
Quarter: 2021Q3

REPORT INFORMATION
  Report Type: Report from Study
  Country: CA (occurrence: CA)
  Receive Date: 20210125
  Receipt Date: 20210919
  Transmission Date: 20211014
  Serious: Yes (Other)
  Sender: FDA-Public Use
  Company Number: CA-NALPROPION PHARMACEUTICALS INC.-2020-011659

PATIENT

DRUGS (12)
  1. CONTRAVE [Suspect]
     Active Substance: BUPROPION HYDROCHLORIDE\NALTREXONE HYDROCHLORIDE
     Dosage: 90 MG/8 MG, TWO TABLETS IN MORNING AND ONE TABLET IN EVENING
     Route: 048
     Dates: start: 20210526
  2. PANTOLOC                           /01263204/ [Concomitant]
     Active Substance: PANTOPRAZOLE SODIUM
     Indication: GASTROOESOPHAGEAL REFLUX DISEASE
     Dosage: 1 IN 1 D
     Route: 048
  3. ASPIRIN                            /00002701/ [Concomitant]
     Active Substance: ASPIRIN
     Indication: PROPHYLAXIS
     Dosage: 81 MG, 1 IN 1 D
     Route: 048
  4. PAXIL [Concomitant]
     Active Substance: PAROXETINE HYDROCHLORIDE
     Indication: DEPRESSION
     Dosage: 20 MG, 1 IN 1 D
     Route: 048
  5. DIVALPROEX [Concomitant]
     Active Substance: DIVALPROEX SODIUM
     Indication: PRODUCT USED FOR UNKNOWN INDICATION
     Dosage: BED TIME (100 MG, 1 IN 1 D)
  6. CONTRAVE [Suspect]
     Active Substance: BUPROPION HYDROCHLORIDE\NALTREXONE HYDROCHLORIDE
     Dosage: 90 MG/8 MG, TWO TABLETS IN MORNING AND ONE TABLET IN EVENING
     Route: 048
     Dates: start: 20201015
  7. METFORMIN [Concomitant]
     Active Substance: METFORMIN HYDROCHLORIDE
     Indication: DIABETES MELLITUS
     Dosage: 500 MG (250 MG, 1 IN 12 HR)
     Route: 048
  8. LIPITOR [Concomitant]
     Active Substance: ATORVASTATIN CALCIUM
     Indication: HYPERCHOLESTEROLAEMIA
     Dosage: 10MG, 1 IN 1 D
     Route: 048
  9. TYLENOL EXTRA STRENGTH [Concomitant]
     Active Substance: ACETAMINOPHEN
     Indication: PAIN
     Dosage: EVENING AND NIGHT TIME (1 IN 12 HR)
  10. CONTRAVE [Suspect]
     Active Substance: BUPROPION HYDROCHLORIDE\NALTREXONE HYDROCHLORIDE
     Indication: WEIGHT CONTROL
     Dosage: 90 MG/8 MG, ONE TABLET IN MORNING
     Route: 048
     Dates: start: 20201001, end: 20201007
  11. CONTRAVE [Suspect]
     Active Substance: BUPROPION HYDROCHLORIDE\NALTREXONE HYDROCHLORIDE
     Dosage: 90 MG/8 MG, ONE TABLET IN MORNING AND ONE TABLET IN EVENING
     Route: 048
     Dates: start: 20201008, end: 20201014
  12. CONTRAVE [Suspect]
     Active Substance: BUPROPION HYDROCHLORIDE\NALTREXONE HYDROCHLORIDE
     Dosage: 90 MG/8 MG, TWO TABLETS IN MORNING AND TWO TABLETS IN EVENING
     Route: 048
     Dates: start: 20210413, end: 202105

REACTIONS (24)
  - Sleep disorder [Recovering/Resolving]
  - Nausea [Unknown]
  - Dizziness [Unknown]
  - Arthritis [Not Recovered/Not Resolved]
  - Hunger [Recovering/Resolving]
  - Sluggishness [Unknown]
  - Irritability [Unknown]
  - Mobility decreased [Not Recovered/Not Resolved]
  - Dysgeusia [Unknown]
  - Feeling abnormal [Unknown]
  - Drug titration error [Unknown]
  - Wrong technique in product usage process [Unknown]
  - Pain [Unknown]
  - Dry mouth [Not Recovered/Not Resolved]
  - Fatigue [Not Recovered/Not Resolved]
  - Inappropriate schedule of product administration [Unknown]
  - Fall [Unknown]
  - Food intolerance [Not Recovered/Not Resolved]
  - Unevaluable event [Unknown]
  - Restlessness [Unknown]
  - Weight increased [Not Recovered/Not Resolved]
  - Balance disorder [Recovered/Resolved]
  - Food craving [Not Recovered/Not Resolved]
  - Abdominal pain upper [Unknown]

NARRATIVE: CASE EVENT DATE: 202010
